FAERS Safety Report 10950475 (Version 1)
Quarter: 2015Q1

REPORT INFORMATION
  Report Type: Spontaneous
  Country: US (occurrence: US)
  Receive Date: 20150324
  Receipt Date: 20150324
  Transmission Date: 20150721
  Serious: No
  Sender: FDA-Public Use
  Company Number: US-GLAXOSMITHKLINE-US2015GSK022095

PATIENT
  Age: 62 Year
  Sex: Female

DRUGS (1)
  1. VOTRIENT [Suspect]
     Active Substance: PAZOPANIB HYDROCHLORIDE
     Indication: MALIGNANT NEOPLASM OF UTERINE ADNEXA
     Dosage: 800 MG, QD
     Route: 048
     Dates: start: 20150122, end: 20150130

REACTIONS (4)
  - Gastrointestinal disorder [Recovering/Resolving]
  - Abdominal distension [Recovering/Resolving]
  - Gastrointestinal pain [Recovering/Resolving]
  - Flatulence [Recovering/Resolving]

NARRATIVE: CASE EVENT DATE: 20150128
